FAERS Safety Report 10153381 (Version 1)
Quarter: 2014Q2

REPORT INFORMATION
  Report Type: Spontaneous
  Country: US (occurrence: US)
  Receive Date: 20140505
  Receipt Date: 20140505
  Transmission Date: 20141212
  Serious: No
  Sender: FDA-Public Use
  Company Number: US-ASTRAZENECA-2013SE51482

PATIENT
  Age: 33 Year
  Sex: Male
  Weight: 76.2 kg

DRUGS (2)
  1. PRILOSEC [Suspect]
     Indication: GASTROOESOPHAGEAL REFLUX DISEASE
     Route: 048
     Dates: start: 2011, end: 2013
  2. PRILOSEC [Suspect]
     Indication: GASTROOESOPHAGEAL REFLUX DISEASE
     Route: 048
     Dates: start: 2013, end: 20130702

REACTIONS (6)
  - Arthralgia [Unknown]
  - Hypoaesthesia [Unknown]
  - Dizziness [Unknown]
  - Erythema [Unknown]
  - Barrett^s oesophagus [Unknown]
  - Pain in extremity [Unknown]
